FAERS Safety Report 9016890 (Version 1)
Quarter: 2013Q1

REPORT INFORMATION
  Report Type: Report from Study
  Country: ES (occurrence: ES)
  Receive Date: 20130117
  Receipt Date: 20130117
  Transmission Date: 20140127
  Serious: Yes (Death, Life-Threatening, Hospitalization)
  Sender: FDA-Public Use
  Company Number: PHHO2013ES000976

PATIENT
  Age: 55 Year
  Sex: Male

DRUGS (3)
  1. CICLOSPORIN [Suspect]
     Indication: GRAFT VERSUS HOST DISEASE
  2. PREDNISONE [Suspect]
     Indication: GRAFT VERSUS HOST DISEASE
  3. DASATINIB [Concomitant]
     Indication: ACUTE LYMPHOCYTIC LEUKAEMIA
     Dosage: 70 MG, UNK
     Route: 048
     Dates: start: 20120313, end: 20121106

REACTIONS (4)
  - Septic shock [Fatal]
  - Pneumonia [Fatal]
  - Bone marrow transplant rejection [Unknown]
  - Urinary tract infection [Unknown]
